FAERS Safety Report 5316288-9 (Version None)
Quarter: 2007Q2

REPORT INFORMATION
  Report Type: 
  Country: None (occurrence: None)
  Receive Date: 20070427
  Receipt Date: 20070413
  Transmission Date: 20071010
  Serious: Yes (Hospitalization)
  Sender: FDA-Public Use
  Company Number: 2007000552

PATIENT
  Age: 71 Year
  Sex: Male
  Weight: 82.5 kg

DRUGS (17)
  1. ERLOTINIB (TABLET) [Suspect]
     Indication: NON-SMALL CELL LUNG CANCER
     Dosage: 100 MG, ORAL
     Route: 048
     Dates: start: 20070110
  2. BEVACIZUMAB (INJECTION FOR INFUSION) [Suspect]
     Indication: NON-SMALL CELL LUNG CANCER
     Dosage: 10 MG/KG, INTRAVENOUS
     Route: 042
     Dates: start: 20070109
  3. PEMETREXED (PEMETREXED) [Suspect]
     Indication: NON-SMALL CELL LUNG CANCER
     Dosage: 500 MG/M2
     Dates: start: 20070109
  4. LIPITOR [Concomitant]
  5. FLOMAX (MORNIFLUMATE) [Concomitant]
  6. ENALAPRIL MALEATE [Concomitant]
  7. ACTOS [Concomitant]
  8. CLARITIN [Concomitant]
  9. ATENOLOL [Concomitant]
  10. WELLBUTRIN (AMFEBUTAMONE HYDROHCLORIDE) [Concomitant]
  11. ACETAMINOPHEN [Concomitant]
  12. DEXAMETHASONE TAB [Concomitant]
  13. FOLIC ACID [Concomitant]
  14. VITAMIN B12 [Concomitant]
  15. COMPAZINE [Concomitant]
  16. CELOCINE LOTION (CLINDAMYCIN PHOSPHATE) [Concomitant]
  17. ARANESP [Concomitant]

REACTIONS (7)
  - BLADDER NEOPLASM [None]
  - HAEMATOCRIT DECREASED [None]
  - NEOPLASM MALIGNANT [None]
  - PENILE HAEMORRHAGE [None]
  - PENILE PAIN [None]
  - TRANSITIONAL CELL CARCINOMA [None]
  - TREATMENT RELATED SECONDARY MALIGNANCY [None]
